FAERS Safety Report 10038735 (Version 1)
Quarter: 2014Q1

REPORT INFORMATION
  Report Type: Spontaneous
  Country: TR (occurrence: TR)
  Receive Date: 20140326
  Receipt Date: 20140326
  Transmission Date: 20141002
  Serious: Yes (Life-Threatening, Hospitalization)
  Sender: FDA-Public Use
  Company Number: TR-BAYER-2014-040260

PATIENT
  Age: 56 Year
  Sex: Male

DRUGS (8)
  1. CLOPIDOGREL [Suspect]
     Dosage: 600 MG, UNK
     Route: 048
  2. CLOPIDOGREL [Suspect]
     Dosage: 75 MG, UNK
     Route: 048
  3. CLOPIDOGREL [Suspect]
     Dosage: 600 UNK,
     Route: 048
  4. ACETYLSALICYLIC ACID (} 100 MG) [Suspect]
     Dosage: 300 MG, UNK
     Route: 048
  5. ACETYLSALICYLIC ACID (} 100 MG) [Suspect]
     Dosage: 100 MG, QD
  6. ATORVASTATIN [Concomitant]
     Dosage: 40 MG, QD
  7. DILTIAZEM [Concomitant]
     Dosage: 90 MG, QD
  8. PRASUGREL [Concomitant]
     Dosage: 10 MG, QD

REACTIONS (4)
  - Vasospasm [None]
  - Kounis syndrome [None]
  - Angioedema [None]
  - Respiratory distress [None]
